FAERS Safety Report 10927988 (Version 1)
Quarter: 2015Q1

REPORT INFORMATION
  Report Type: Report from Study
  Country: US (occurrence: US)
  Receive Date: 20150319
  Receipt Date: 20150319
  Transmission Date: 20150721
  Serious: Yes (Hospitalization, Other)
  Sender: FDA-Public Use
  Company Number: US-AMGEN-USASL2015024971

PATIENT
  Age: 65 Year
  Sex: Female

DRUGS (1)
  1. ENBREL [Suspect]
     Active Substance: ETANERCEPT
     Indication: RHEUMATOID ARTHRITIS
     Dosage: 50 MG, QWK
     Route: 058
     Dates: start: 2014

REACTIONS (9)
  - Blood pressure increased [Unknown]
  - Local swelling [Unknown]
  - Swelling face [Unknown]
  - Peripheral swelling [Recovered/Resolved]
  - Blood potassium decreased [Unknown]
  - Wound complication [Unknown]
  - Salivary gland calculus [Unknown]
  - Dyskinesia [Unknown]
  - Injury [Unknown]

NARRATIVE: CASE EVENT DATE: 201501
